FAERS Safety Report 6373543-1 (Version None)
Quarter: 2009Q3

REPORT INFORMATION
  Report Type: 
  Country: None (occurrence: None)
  Receive Date: 20090924
  Receipt Date: 20090223
  Transmission Date: 20100115
  Serious: No
  Sender: FDA-Public Use
  Company Number: US-ASTRAZENECA-2009UW05104

PATIENT

DRUGS (1)
  1. SEROQUEL XR [Suspect]
     Dosage: UNKNOWN
     Route: 048

REACTIONS (2)
  - AKATHISIA [None]
  - MANIA [None]
